FAERS Safety Report 5078734-8 (Version None)
Quarter: 2006Q3

REPORT INFORMATION
  Report Type: 
  Country: None (occurrence: None)
  Receive Date: 20060720
  Receipt Date: 20060616
  Transmission Date: 20061208
  Serious: Yes (Other)
  Sender: FDA-Public Use
  Company Number: HQWYE276520JUN06

PATIENT
  Age: 69 Year
  Sex: Female
  Weight: 49.94 kg

DRUGS (3)
  1. ADVIL PM [Suspect]
     Indication: INSOMNIA
     Dosage: 1 TABLET TWICE, ORAL
     Route: 048
     Dates: start: 20060501, end: 20060501
  2. ADVIL PM [Suspect]
     Indication: PAIN
     Dosage: 1 TABLET TWICE, ORAL
     Route: 048
     Dates: start: 20060501, end: 20060501
  3. ACTONEL [Concomitant]

REACTIONS (1)
  - DRUG INEFFECTIVE [None]
